FAERS Safety Report 11051126 (Version 1)
Quarter: 2015Q2

REPORT INFORMATION
  Report Type: Spontaneous
  Country: US (occurrence: None)
  Receive Date: 20150420
  Receipt Date: 20150420
  Transmission Date: 20150821
  Serious: No
  Sender: FDA-Public Use
  Company Number: None

PATIENT
  Sex: Male

DRUGS (2)
  1. PENICILLIN V [Suspect]
     Active Substance: PENICILLIN V
  2. ACETAMINOPHEN AND CODEINE PHOSPHATE #3 [Suspect]
     Active Substance: ACETAMINOPHEN\CODEINE PHOSPHATE

REACTIONS (5)
  - Nausea [None]
  - Drug dispensing error [None]
  - Gait disturbance [None]
  - Dizziness [None]
  - Syncope [None]

NARRATIVE: CASE EVENT DATE: 2015
